FAERS Safety Report 7793378-2 (Version None)
Quarter: 2011Q4

REPORT INFORMATION
  Report Type: 
  Country: None (occurrence: None)
  Receive Date: 20111003
  Receipt Date: 20110413
  Transmission Date: 20120403
  Serious: Yes (Life-Threatening, Other)
  Sender: FDA-Public Use
  Company Number: US-ELI_LILLY_AND_COMPANY-US201011000182

PATIENT
  Sex: Female
  Weight: 58.5 kg

DRUGS (10)
  1. FORTEO [Suspect]
     Dosage: 20 UG, DAILY (1/D)
     Route: 065
  2. VALIUM [Concomitant]
  3. FORTEO [Suspect]
     Dosage: 20 UG, DAILY (1/D)
  4. TEMAZEPAM [Concomitant]
  5. CALCIUM CARBONATE [Concomitant]
  6. FORTEO [Suspect]
     Dosage: 20 UG, DAILY (1/D)
     Route: 065
  7. OPANA [Concomitant]
  8. PERCOCET [Concomitant]
  9. TRAZODONE HYDROCHLORIDE [Concomitant]
  10. FORTEO [Suspect]
     Indication: OSTEOPOROSIS
     Dosage: 20 UG, DAILY (1/D)
     Route: 065
     Dates: start: 20100924, end: 20110127

REACTIONS (13)
  - PSYCHOTIC DISORDER [None]
  - ALOPECIA [None]
  - HAIR TEXTURE ABNORMAL [None]
  - SKIN DISORDER [None]
  - FEELING ABNORMAL [None]
  - DEPRESSION [None]
  - INTENTIONAL OVERDOSE [None]
  - SUICIDE ATTEMPT [None]
  - FATIGUE [None]
  - PRURITUS [None]
  - ERYTHEMA [None]
  - ANGER [None]
  - URTICARIA [None]
